FAERS Safety Report 10869890 (Version 1)
Quarter: 2015Q1

REPORT INFORMATION
  Report Type: Spontaneous
  Country: US (occurrence: US)
  Receive Date: 20150226
  Receipt Date: 20150226
  Transmission Date: 20150721
  Serious: No
  Sender: FDA-Public Use
  Company Number: US-PFIZER INC-2015067643

PATIENT
  Sex: Male

DRUGS (1)
  1. VIAGRA [Suspect]
     Active Substance: SILDENAFIL CITRATE
     Indication: ERECTILE DYSFUNCTION
     Dosage: UNK
     Route: 048
     Dates: start: 20150217, end: 20150217

REACTIONS (3)
  - Scrotal disorder [Recovered/Resolved]
  - Ejaculation disorder [Recovered/Resolved]
  - Penis disorder [Recovered/Resolved]

NARRATIVE: CASE EVENT DATE: 20150217
